FAERS Safety Report 21794615 (Version 2)
Quarter: 2023Q1

REPORT INFORMATION
  Report Type: Spontaneous
  Country: PT (occurrence: PT)
  Receive Date: 20221229
  Receipt Date: 20230112
  Transmission Date: 20230417
  Serious: Yes (Hospitalization)
  Sender: FDA-Public Use
  Company Number: PT-TEVA-2022-PT-2840282

PATIENT
  Age: 66 Year
  Sex: Female

DRUGS (3)
  1. VENLAFAXINE [Interacting]
     Active Substance: VENLAFAXINE HYDROCHLORIDE
     Indication: Major depression
     Dosage: 75 MILLIGRAM DAILY;
     Route: 065
  2. MIRTAZAPINE [Interacting]
     Active Substance: MIRTAZAPINE
     Indication: Major depression
     Dosage: 30 MILLIGRAM DAILY;
     Route: 065
  3. TERBINAFINE [Interacting]
     Active Substance: TERBINAFINE
     Indication: Onychomycosis
     Route: 065

REACTIONS (3)
  - Psychomotor hyperactivity [Unknown]
  - Mania [Unknown]
  - Drug interaction [Unknown]
